FAERS Safety Report 6361457-2 (Version None)
Quarter: 2009Q3

REPORT INFORMATION
  Report Type: 
  Country: None (occurrence: None)
  Receive Date: 20090918
  Receipt Date: 20090909
  Transmission Date: 20100115
  Serious: Yes (Other)
  Sender: FDA-Public Use
  Company Number: US-ABBOTT-09P-163-0596619-00

PATIENT
  Age: 11 Year
  Sex: Female
  Weight: 68 kg

DRUGS (15)
  1. WARFARIN SODIUM [Suspect]
     Indication: DRUG USE FOR UNKNOWN INDICATION
  2. WARFARIN SODIUM [Suspect]
  3. WARFARIN SODIUM [Suspect]
     Dosage: 1 MG/KG EVERY 3-5 DAYS
  4. WARFARIN SODIUM [Suspect]
  5. BIVALIRUDIN [Concomitant]
     Indication: DRUG USE FOR UNKNOWN INDICATION
     Route: 042
  6. ALTEPLASE [Concomitant]
     Indication: DRUG USE FOR UNKNOWN INDICATION
     Route: 042
  7. ALTEPLASE [Concomitant]
  8. ALTEPLASE [Concomitant]
  9. CEFAZOLIN [Concomitant]
     Indication: DRUG USE FOR UNKNOWN INDICATION
  10. RANITIDINE [Concomitant]
     Indication: DRUG USE FOR UNKNOWN INDICATION
  11. CHLORAL HYDRATE [Concomitant]
     Indication: DRUG USE FOR UNKNOWN INDICATION
     Dosage: ONE DOSE
  12. ARGATROBAN [Concomitant]
     Indication: DRUG USE FOR UNKNOWN INDICATION
  13. ARGATROBAN [Concomitant]
  14. FONDAPARINUX [Concomitant]
     Indication: DRUG USE FOR UNKNOWN INDICATION
     Route: 058
  15. CORTICOSTEROIDS [Concomitant]
     Indication: DRUG USE FOR UNKNOWN INDICATION

REACTIONS (18)
  - ABDOMINAL PAIN [None]
  - ANXIETY [None]
  - BLOOD CREATININE INCREASED [None]
  - CATHETER THROMBOSIS [None]
  - HEPARIN-INDUCED THROMBOCYTOPENIA [None]
  - HYPERTENSION [None]
  - INTERNATIONAL NORMALISED RATIO INCREASED [None]
  - KLEBSIELLA SEPSIS [None]
  - OEDEMA PERIPHERAL [None]
  - PLATELET COUNT DECREASED [None]
  - PNEUMOTHORAX [None]
  - PULMONARY EMBOLISM [None]
  - PULMONARY HAEMORRHAGE [None]
  - PULMONARY HYPERTENSION [None]
  - RESPIRATORY DISTRESS [None]
  - RESPIRATORY FAILURE [None]
  - THROMBOSIS [None]
  - VENOUS OCCLUSION [None]
